FAERS Safety Report 5376364-1 (Version None)
Quarter: 2007Q3

REPORT INFORMATION
  Report Type: 
  Country: None (occurrence: None)
  Receive Date: 20070702
  Receipt Date: 20070625
  Transmission Date: 20080115
  Serious: Yes (Other)
  Sender: FDA-Public Use
  Company Number: US-GILEAD-2007-0011876

PATIENT
  Sex: Male
  Weight: 87.168 kg

DRUGS (13)
  1. ATRIPLA [Suspect]
     Indication: HIV INFECTION
     Route: 048
     Dates: start: 20061027, end: 20070402
  2. GLUCOSAMINE [Concomitant]
  3. CHONDROITIN [Concomitant]
  4. FINASTERIDE [Concomitant]
  5. SELENIUM SULFIDE [Concomitant]
  6. ROYAL JELLY [Concomitant]
  7. MULTI-VITAMIN [Concomitant]
  8. OMEGA 3 [Concomitant]
  9. COQ10 [Concomitant]
  10. GINSENG [Concomitant]
  11. GINKGO [Concomitant]
  12. BILBERRY [Concomitant]
  13. ECHINACEA [Concomitant]

REACTIONS (1)
  - HEPATITIS ACUTE [None]
